FAERS Safety Report 5105385-9 (Version None)
Quarter: 2006Q3

REPORT INFORMATION
  Report Type: 
  Country: None (occurrence: None)
  Receive Date: 20060731
  Receipt Date: 20051229
  Transmission Date: 20061208
  Serious: Yes (Other)
  Sender: FDA-Public Use
  Company Number: US-JNJFOC-20060100430

PATIENT
  Age: 36 Year
  Sex: Male
  Weight: 72.5755 kg

DRUGS (1)
  1. RISPERDAL [Suspect]
     Indication: SCHIZOAFFECTIVE DISORDER
     Dosage: 2 MG, IN 1 DAY, ORAL
     Route: 048

REACTIONS (1)
  - WEIGHT INCREASED [None]
